FAERS Safety Report 18111810 (Version 2)
Quarter: 2020Q3

REPORT INFORMATION
  Report Type: Spontaneous
  Country: JP (occurrence: JP)
  Receive Date: 20200805
  Receipt Date: 20200827
  Transmission Date: 20201103
  Serious: Yes (Life-Threatening, Other)
  Sender: FDA-Public Use
  Company Number: JP-AMGEN-JPNSP2020124606

PATIENT
  Age: 70 Year
  Sex: Female
  Weight: 71 kg

DRUGS (7)
  1. FAMOTIDINE OD ME [Concomitant]
     Dosage: UNK
     Route: 048
  2. AMLODIPINE OD TYK [Concomitant]
     Dosage: UNK
     Route: 048
  3. DEXART [Concomitant]
     Active Substance: DEXAMETHASONE SODIUM PHOSPHATE
     Dosage: UNK
     Route: 065
     Dates: start: 20200702
  4. KYPROLIS [Suspect]
     Active Substance: CARFILZOMIB
     Indication: PLASMA CELL MYELOMA
     Dosage: 110 MG
     Route: 041
     Dates: start: 20200702, end: 20200702
  5. ROZEREM [Concomitant]
     Active Substance: RAMELTEON
     Dosage: UNK
     Route: 048
  6. BISOPROLOL FUMARATE YOSHINDO [Concomitant]
     Dosage: UNK
     Route: 048
  7. ENALAPRIL MALEATE. [Concomitant]
     Active Substance: ENALAPRIL MALEATE
     Dosage: UNK
     Route: 048

REACTIONS (1)
  - Anaphylactic shock [Recovered/Resolved]

NARRATIVE: CASE EVENT DATE: 20200702
